FAERS Safety Report 6940030-9 (Version None)
Quarter: 2010Q3

REPORT INFORMATION
  Report Type: 
  Country: None (occurrence: None)
  Receive Date: 20100825
  Receipt Date: 20100813
  Transmission Date: 20110219
  Serious: No
  Sender: FDA-Public Use
  Company Number: US-PFIZER INC-2010092448

PATIENT
  Sex: Female
  Weight: 86.168 kg

DRUGS (3)
  1. GABAPENTIN [Suspect]
     Indication: NEUROPATHY PERIPHERAL
     Dosage: 100 MG, 3X/DAY
     Route: 048
  2. GABAPENTIN [Suspect]
     Dosage: 300 MG, 4X/DAY
     Route: 048
  3. GABAPENTIN [Suspect]
     Dosage: UNK

REACTIONS (1)
  - PAIN IN EXTREMITY [None]
